FAERS Safety Report 6062154-3 (Version None)
Quarter: 2009Q1

REPORT INFORMATION
  Report Type: 
  Country: None (occurrence: None)
  Receive Date: 20090129
  Receipt Date: 20090129
  Transmission Date: 20090719
  Serious: Yes (Life-Threatening, Hospitalization, Other)
  Sender: FDA-Public Use
  Company Number: None

PATIENT
  Sex: Female
  Weight: 108.8633 kg

DRUGS (2)
  1. PIOGLITAZONE HCL [Suspect]
     Indication: TYPE 2 DIABETES MELLITUS
     Dosage: 45MG ONCE EVERYDAY PO
     Route: 048
     Dates: start: 20030915, end: 20040718
  2. ROSIGLITAZONE MALEATE [Suspect]
     Indication: TYPE 2 DIABETES MELLITUS
     Dosage: 4MG ONCE EVERYDAY PO
     Route: 048
     Dates: start: 20030712, end: 20060519

REACTIONS (2)
  - CARDIAC FAILURE CONGESTIVE [None]
  - SWELLING FACE [None]
